FAERS Safety Report 6617432-3 (Version None)
Quarter: 2010Q1

REPORT INFORMATION
  Report Type: 
  Country: None (occurrence: None)
  Receive Date: 20100302
  Receipt Date: 20100216
  Transmission Date: 20100710
  Serious: Yes (Hospitalization)
  Sender: FDA-Public Use
  Company Number: 20100070

PATIENT
  Age: 60 Year
  Sex: Female

DRUGS (2)
  1. EPINEPHRINE [Suspect]
     Indication: ANGIOEDEMA
     Dosage: 0.3 CC INTRAVENOUS
     Route: 042
  2. DIPHENHYDRAMINE HYDROCHLORIDE [Concomitant]

REACTIONS (5)
  - CHEST PAIN [None]
  - DIZZINESS [None]
  - INCORRECT ROUTE OF DRUG ADMINISTRATION [None]
  - TUNNEL VISION [None]
  - VENTRICULAR TACHYCARDIA [None]
